FAERS Safety Report 23083092 (Version 1)
Quarter: 2023Q4

REPORT INFORMATION
  Report Type: Spontaneous
  Country: US (occurrence: None)
  Receive Date: 20231017
  Receipt Date: 20231017
  Transmission Date: 20240110
  Serious: Yes (Hospitalization)
  Sender: FDA-Public Use
  Company Number: None

PATIENT
  Age: 42 Year
  Sex: Female

DRUGS (1)
  1. EMPAGLIFLOZIN [Suspect]
     Active Substance: EMPAGLIFLOZIN
     Dosage: OTHER QUANTITY : 12.5-25MG;?FREQUENCY : DAILY;?
     Route: 048
     Dates: start: 20200815, end: 20230207

REACTIONS (2)
  - Urinary tract infection [None]
  - Glucose urine present [None]

NARRATIVE: CASE EVENT DATE: 20230207
